FAERS Safety Report 5825271-6 (Version None)
Quarter: 2008Q3

REPORT INFORMATION
  Report Type: 
  Country: None (occurrence: None)
  Receive Date: 20080722
  Receipt Date: 20080715
  Transmission Date: 20090109
  Serious: Yes (Other)
  Sender: FDA-Public Use
  Company Number: 2008-179298-NL

PATIENT
  Age: 18 Year
  Sex: Female
  Weight: 77.1 kg

DRUGS (1)
  1. NUVARING [Suspect]
     Indication: MENORRHAGIA
     Dates: start: 20070101

REACTIONS (2)
  - MYOPIA [None]
  - VISUAL FIELD DEFECT [None]
